FAERS Safety Report 7877464-4 (Version None)
Quarter: 2011Q4

REPORT INFORMATION
  Report Type: 
  Country: None (occurrence: None)
  Receive Date: 20111031
  Receipt Date: 20111025
  Transmission Date: 20120403
  Serious: Yes (Other)
  Sender: FDA-Public Use
  Company Number: US-PFIZER INC-2011260109

PATIENT
  Sex: Female
  Weight: 54.422 kg

DRUGS (4)
  1. XANAX [Suspect]
     Indication: ANXIETY
     Dosage: 0.5 MG, 3X/DAY
     Route: 048
     Dates: start: 20050101
  2. LANSOPRAZOLE [Concomitant]
     Dosage: 20 MG, UNK
  3. XANAX [Suspect]
     Dosage: 0.5 MG, 4X/DAY
  4. ZYPREXA [Concomitant]
     Indication: DEPRESSION
     Dosage: UNK

REACTIONS (11)
  - TREMOR [None]
  - BLOOD CHOLESTEROL INCREASED [None]
  - INSOMNIA [None]
  - DIARRHOEA [None]
  - DISABILITY [None]
  - FEELING ABNORMAL [None]
  - HYPERHIDROSIS [None]
  - RETCHING [None]
  - VOMITING [None]
  - NERVOUSNESS [None]
  - ANXIETY [None]
